FAERS Safety Report 9616196 (Version 1)
Quarter: 2013Q4

REPORT INFORMATION
  Report Type: Spontaneous
  Country: US (occurrence: None)
  Receive Date: 20131010
  Receipt Date: 20131010
  Transmission Date: 20140711
  Serious: Yes (Hospitalization)
  Sender: FDA-Public Use
  Company Number: None

PATIENT
  Age: 68 Year
  Sex: Female
  Weight: 78.4 kg

DRUGS (19)
  1. OFATUMUMAB [Suspect]
     Indication: CHRONIC LYMPHOCYTIC LEUKAEMIA
     Dosage: 1000MG  IV  MONTHLY
     Route: 042
     Dates: start: 20130423, end: 20130909
  2. ALEMTUZUMAB [Suspect]
     Indication: CHRONIC LYMPHOCYTIC LEUKAEMIA
     Dosage: 30MG  SC  3X PER WEEK
     Route: 058
     Dates: start: 20130612, end: 20130930
  3. ACYCLOVIR [Concomitant]
  4. ALBUTEROL [Concomitant]
  5. ATIVAN [Concomitant]
  6. ATOVAQUONE [Concomitant]
  7. COMPAZINE [Concomitant]
  8. FLONASE [Concomitant]
  9. HYDROCHLOROTHIAZIDE [Concomitant]
  10. HYDROCODONE [Concomitant]
  11. LEVAQUIN [Concomitant]
  12. LOVENOX [Concomitant]
  13. POSCONAZOLE [Concomitant]
  14. PREDNISONE [Concomitant]
  15. PRILOSEC [Concomitant]
  16. SINGULAIR [Concomitant]
  17. SYMBICORT [Concomitant]
  18. VALCYTE [Concomitant]
  19. ZYRTEC [Concomitant]

REACTIONS (8)
  - Pyrexia [None]
  - Cough [None]
  - Back pain [None]
  - Headache [None]
  - Nasal congestion [None]
  - Nausea [None]
  - Dyspnoea exertional [None]
  - Pneumonia [None]
